FAERS Safety Report 5399697-1 (Version None)
Quarter: 2007Q3

REPORT INFORMATION
  Report Type: 
  Country: None (occurrence: None)
  Receive Date: 20070727
  Receipt Date: 20070719
  Transmission Date: 20080115
  Serious: Yes (Hospitalization)
  Sender: FDA-Public Use
  Company Number: GB-PFIZER INC-2007060012

PATIENT
  Age: 62 Year
  Sex: Male

DRUGS (6)
  1. ALPRAZOLAM [Suspect]
  2. DIAZEPAM [Suspect]
     Indication: DRUG DEPENDENCE
  3. LORAZEPAM [Suspect]
     Indication: ANXIETY
  4. TEMAZEPAM [Suspect]
     Indication: ANXIETY
  5. ZOPICLONE [Suspect]
     Indication: DRUG DEPENDENCE
  6. FLUOXETINE [Concomitant]

REACTIONS (4)
  - DRUG DEPENDENCE [None]
  - DRUG WITHDRAWAL SYNDROME [None]
  - SELF INJURIOUS BEHAVIOUR [None]
  - SUICIDE ATTEMPT [None]
